FAERS Safety Report 12613168 (Version 1)
Quarter: 2016Q3

REPORT INFORMATION
  Report Type: Report from Study
  Country: US (occurrence: US)
  Receive Date: 20160802
  Receipt Date: 20160802
  Transmission Date: 20161109
  Serious: Yes (Hospitalization, Other)
  Sender: FDA-Public Use
  Company Number: US-ALEXION PHARMACEUTICALS INC-A201605479

PATIENT
  Sex: Female

DRUGS (1)
  1. SOLIRIS [Suspect]
     Active Substance: ECULIZUMAB
     Indication: HAEMOLYTIC URAEMIC SYNDROME
     Dosage: 1200 MG, Q2W
     Route: 042
     Dates: end: 20160721

REACTIONS (6)
  - Vision blurred [Recovering/Resolving]
  - Migraine [Not Recovered/Not Resolved]
  - Eye pain [Recovering/Resolving]
  - Ocular hyperaemia [Recovering/Resolving]
  - Autoimmune disorder [Unknown]
  - Lacrimation increased [Recovering/Resolving]

NARRATIVE: CASE EVENT DATE: 20160720
